FAERS Safety Report 10240558 (Version 1)
Quarter: 2014Q2

REPORT INFORMATION
  Report Type: Spontaneous
  Country: US (occurrence: None)
  Receive Date: 20140613
  Receipt Date: 20140613
  Transmission Date: 20141212
  Serious: Yes (Other)
  Sender: FDA-Public Use
  Company Number: None

PATIENT
  Age: 80 Year
  Sex: Female
  Weight: 42.64 kg

DRUGS (2)
  1. PREDNISONE [Suspect]
     Indication: COUGH
     Route: 048
     Dates: start: 20140506, end: 20140518
  2. SYNTHROID [Concomitant]

REACTIONS (2)
  - Epistaxis [None]
  - Rectal haemorrhage [None]
